FAERS Safety Report 17308265 (Version 2)
Quarter: 2020Q1

REPORT INFORMATION
  Report Type: Spontaneous
  Country: GB (occurrence: GB)
  Receive Date: 20200123
  Receipt Date: 20200131
  Transmission Date: 20200409
  Serious: Yes (Hospitalization, Other)
  Sender: FDA-Public Use
  Company Number: GB-MYLANLABS-2020M1007139

PATIENT
  Age: 48 Year
  Sex: Female

DRUGS (3)
  1. FLUSPIRILENE [Concomitant]
     Active Substance: FLUSPIRILENE
     Indication: SCHIZOAFFECTIVE DISORDER
     Dosage: UNK
     Route: 065
  2. CLOZARIL [Suspect]
     Active Substance: CLOZAPINE
     Indication: SCHIZOAFFECTIVE DISORDER
     Dosage: 125 MG, QD (SINGLE DOSE OF 125 MG AT NIGHT)
     Route: 048
     Dates: start: 20191024
  3. CLOZARIL [Suspect]
     Active Substance: CLOZAPINE
     Indication: SCHIZOPHRENIA
     Dosage: UNK
     Route: 048
     Dates: start: 20180817

REACTIONS (7)
  - Chronic obstructive pulmonary disease [Unknown]
  - Leukocytosis [Unknown]
  - White blood cell count decreased [Unknown]
  - Differential white blood cell count abnormal [Unknown]
  - Neutrophilia [Unknown]
  - Contraindicated product administered [Unknown]
  - Product use in unapproved indication [Unknown]

NARRATIVE: CASE EVENT DATE: 20180817
